FAERS Safety Report 4857607-7 (Version None)
Quarter: 2005Q4

REPORT INFORMATION
  Report Type: 
  Country: None (occurrence: None)
  Receive Date: 20051215
  Receipt Date: 20051202
  Transmission Date: 20060501
  Serious: Yes (Other)
  Sender: FDA-Public Use
  Company Number: HQWYE830406DEC05

PATIENT
  Age: 30 Year
  Sex: Female

DRUGS (1)
  1. PREMARIN [Suspect]
     Indication: HORMONE REPLACEMENT THERAPY
     Dosage: 0.3 MG 1X PER 1 DAY ORAL
     Route: 048
     Dates: start: 19800101, end: 20020101

REACTIONS (8)
  - ASTHMA [None]
  - CONDITION AGGRAVATED [None]
  - COUGH [None]
  - EYE INFECTION [None]
  - FAECES DISCOLOURED [None]
  - HYPOAESTHESIA [None]
  - OCULAR NEOPLASM [None]
  - SKIN FISSURES [None]
